FAERS Safety Report 24398439 (Version 1)
Quarter: 2024Q4

REPORT INFORMATION
  Report Type: Spontaneous
  Country: US (occurrence: US)
  Receive Date: 20241004
  Receipt Date: 20241004
  Transmission Date: 20250115
  Serious: No
  Sender: INTRA-CELLULAR THERAPIES
  Company Number: US-INTRA-CELLULAR THERAPIES, INC.-2024ICT01230

PATIENT
  Age: 38 Year
  Sex: Female

DRUGS (2)
  1. CAPLYTA [Suspect]
     Active Substance: LUMATEPERONE
     Indication: Bipolar disorder
     Dosage: 42 MG, 1X/DAY
     Route: 048
     Dates: start: 2023
  2. XANAX [Concomitant]
     Active Substance: ALPRAZOLAM
     Indication: Panic attack
     Dosage: UNK, AS NEEDED

REACTIONS (3)
  - Feeling abnormal [Unknown]
  - Hypomania [Unknown]
  - Manic symptom [Unknown]

NARRATIVE: CASE EVENT DATE: 20240101
